FAERS Safety Report 7958107-8 (Version None)
Quarter: 2011Q4

REPORT INFORMATION
  Report Type: 
  Country: None (occurrence: None)
  Receive Date: 20111130
  Receipt Date: 20111123
  Transmission Date: 20120403
  Serious: Yes (Hospitalization, Other)
  Sender: FDA-Public Use
  Company Number: ADR-2011-11611

PATIENT
  Age: 12 Year
  Sex: Male

DRUGS (1)
  1. BACLOFEN [Suspect]
     Indication: CEREBRAL PALSY
     Dosage: 631.6 MCG/DAY

REACTIONS (7)
  - HYPERTONIA [None]
  - DEVICE OCCLUSION [None]
  - IRRITABILITY [None]
  - ACTIVITIES OF DAILY LIVING IMPAIRED [None]
  - HOSPITALISATION [None]
  - WITHDRAWAL SYNDROME [None]
  - DEVICE INTOLERANCE [None]
